FAERS Safety Report 16727759 (Version 2)
Quarter: 2019Q3

REPORT INFORMATION
  Report Type: Spontaneous
  Country: JP (occurrence: JP)
  Receive Date: 20190822
  Receipt Date: 20190911
  Transmission Date: 20191005
  Serious: Yes (Other)
  Sender: FDA-Public Use
  Company Number: JP-ABBVIE-19K-087-2629244-00

PATIENT
  Sex: Female

DRUGS (8)
  1. HEPARINOID [Concomitant]
     Active Substance: CHONDROITIN SULFATE (BOVINE)
     Indication: ABSCESS
     Route: 061
     Dates: start: 20190104
  2. WHITE PETROLATUM [Concomitant]
     Active Substance: PETROLATUM
     Indication: ABSCESS
     Route: 061
     Dates: start: 20190104
  3. CEFACLOR. [Concomitant]
     Active Substance: CEFACLOR
     Indication: PRODUCT USED FOR UNKNOWN INDICATION
     Route: 048
  4. SODIUM FUSIDATE [Concomitant]
     Active Substance: FUSIDATE SODIUM
     Indication: PRODUCT USED FOR UNKNOWN INDICATION
     Route: 061
  5. ANTIBIOTICS-RESISTANT LACTIC ACID BACTERIAE [Concomitant]
     Active Substance: UNSPECIFIED INGREDIENT
     Indication: COLITIS ULCERATIVE
     Dates: start: 20181213
  6. HUMIRA [Suspect]
     Active Substance: ADALIMUMAB
     Indication: COLITIS ULCERATIVE
     Route: 058
     Dates: start: 20181220, end: 20190328
  7. CLOBETASOL PROPIONATE. [Concomitant]
     Active Substance: CLOBETASOL PROPIONATE
     Indication: ABSCESS
     Route: 061
     Dates: start: 20190104
  8. MESALAZINE [Concomitant]
     Active Substance: MESALAMINE
     Indication: COLITIS ULCERATIVE
     Route: 048
     Dates: start: 20181211

REACTIONS (2)
  - Breech presentation [Unknown]
  - Exposure during pregnancy [Unknown]
